FAERS Safety Report 4548512-4 (Version None)
Quarter: 2005Q1

REPORT INFORMATION
  Report Type: 
  Country: None (occurrence: None)
  Receive Date: 20050110
  Receipt Date: 20050104
  Transmission Date: 20050727
  Serious: Yes (Hospitalization, Disabling)
  Sender: FDA-Public Use
  Company Number: GB-GLAXOSMITHKLINE-B0363328A

PATIENT
  Age: 83 Year
  Sex: Female

DRUGS (10)
  1. AMOXICILLIN [Suspect]
     Indication: SEPSIS
     Dosage: 1G FOUR TIMES PER DAY
     Route: 042
     Dates: start: 20041122, end: 20041124
  2. IMIPENEM [Suspect]
     Indication: SEPSIS
     Dosage: 500MG FOUR TIMES PER DAY
     Route: 042
     Dates: start: 20041123, end: 20041130
  3. CIPROFLOXACIN [Suspect]
     Indication: INFECTION
     Dosage: 500MG TWICE PER DAY
     Route: 048
     Dates: start: 20041122, end: 20041124
  4. FLUCLOXACILLIN [Concomitant]
     Indication: STAPHYLOCOCCAL SEPSIS
     Dosage: 1G PER DAY
     Route: 042
     Dates: start: 20040923, end: 20041106
  5. CO-CODAMOL [Concomitant]
     Dosage: 2TAB FOUR TIMES PER DAY
     Route: 048
  6. ATENOLOL [Concomitant]
     Dosage: 50MG PER DAY
     Route: 048
     Dates: start: 20041110, end: 20041120
  7. ENOXAPARIN SODIUM [Concomitant]
     Dosage: 150MG PER DAY
     Route: 058
     Dates: start: 20041111, end: 20041127
  8. AMLODIPINE [Concomitant]
     Dosage: 5MG PER DAY
     Route: 048
     Dates: start: 20041110, end: 20041209
  9. METRONIDAZOLE [Concomitant]
     Dosage: 500MG THREE TIMES PER DAY
     Route: 042
     Dates: start: 20041120, end: 20041125
  10. DIGOXIN [Concomitant]
     Indication: ATRIAL FIBRILLATION
     Dosage: 125MCG PER DAY
     Route: 048
     Dates: start: 20041120

REACTIONS (1)
  - CLOSTRIDIUM COLITIS [None]
